FAERS Safety Report 9999916 (Version 1)
Quarter: 2014Q1

REPORT INFORMATION
  Report Type: Spontaneous
  Country: US (occurrence: None)
  Receive Date: 20140227
  Receipt Date: 20140227
  Transmission Date: 20141002
  Serious: Yes (Other)
  Sender: FDA-Public Use
  Company Number: SYM-2013-06792

PATIENT
  Age: 51 Year
  Sex: Male
  Weight: 99 kg

DRUGS (13)
  1. TARGRETIN [Suspect]
     Indication: MYCOSIS FUNGOIDES
     Route: 048
     Dates: start: 20111107, end: 20111129
  2. LEVOTHYROXINE (LEVOTHYROXINE) (LEVOTHYROXINE) [Concomitant]
  3. TRICOR [Concomitant]
  4. CENTRUM SILVER [Concomitant]
  5. CITRUCEL [Concomitant]
  6. OMEPRAZOLE (OMEPRAZOLE) (OMEPRAZOLE) [Concomitant]
  7. ATARAX [Concomitant]
  8. MIRTAZAPINE (MIRTAZAPINE) (MIRTAZAPINE) [Concomitant]
  9. SARNA [Concomitant]
  10. FISH OIL [Concomitant]
  11. FENOFIBRATE (FENOFIBRATE) (FENOFIBRATE) [Concomitant]
  12. PRAVASTATIN [Concomitant]
  13. NYSTATIN [Concomitant]

REACTIONS (2)
  - Neutropenia [None]
  - Hypertriglyceridaemia [None]
